FAERS Safety Report 25060577 (Version 8)
Quarter: 2025Q4

REPORT INFORMATION
  Report Type: Report from Study
  Country: EU (occurrence: EU)
  Receive Date: 20250310
  Receipt Date: 20251208
  Transmission Date: 20260118
  Serious: Yes (Hospitalization)
  Sender: ABBVIE
  Company Number: EU-ABBVIE-6169397

PATIENT
  Sex: Male

DRUGS (7)
  1. FOSCARBIDOPA\FOSLEVODOPA [Suspect]
     Active Substance: FOSCARBIDOPA\FOSLEVODOPA
     Indication: Parkinson^s disease
     Route: 058
     Dates: start: 20240722
  2. FOSCARBIDOPA\FOSLEVODOPA [Suspect]
     Active Substance: FOSCARBIDOPA\FOSLEVODOPA
     Dosage: DOSE INCREASED
     Route: 058
  3. FOSCARBIDOPA\FOSLEVODOPA [Suspect]
     Active Substance: FOSCARBIDOPA\FOSLEVODOPA
     Dosage: CRL: 0.17 ML/H, CR: 0.27 ML/H, CRH: 0.29 ML/H, ED: 0.10 ML?DOSE DECREASED
     Route: 058
  4. FOSCARBIDOPA\FOSLEVODOPA [Suspect]
     Active Substance: FOSCARBIDOPA\FOSLEVODOPA
     Dosage: CRN: 0.16 ML/H, CR: 0.24 ML/H, CRH: 0.29 ML/H, ED: 0.10 ML
     Route: 058
  5. FOSCARBIDOPA\FOSLEVODOPA [Suspect]
     Active Substance: FOSCARBIDOPA\FOSLEVODOPA
     Dosage: CRN: 0.17 ML/H; CR: 0.29 ML/H
     Route: 058
  6. FOSCARBIDOPA\FOSLEVODOPA [Suspect]
     Active Substance: FOSCARBIDOPA\FOSLEVODOPA
     Dosage: CRN: 0.17 ML/H, CR: 0.30 ML/H, CRH: 0.31 ML/H, ED: 0.10 ML
     Route: 058
  7. CLOZAPINE [Concomitant]
     Active Substance: CLOZAPINE
     Indication: Parkinson^s disease

REACTIONS (10)
  - Mobility decreased [Recovering/Resolving]
  - Hyperhidrosis [Not Recovered/Not Resolved]
  - Atrioventricular block [Unknown]
  - Dementia [Recovering/Resolving]
  - Fatigue [Recovering/Resolving]
  - Pneumonia [Recovering/Resolving]
  - On and off phenomenon [Unknown]
  - Akinesia [Unknown]
  - Pneumonia aspiration [Unknown]
  - Dysphagia [Unknown]
